FAERS Safety Report 8055371-4 (Version None)
Quarter: 2012Q1

REPORT INFORMATION
  Report Type: 
  Country: None (occurrence: None)
  Receive Date: 20120119
  Receipt Date: 20120117
  Transmission Date: 20120608
  Serious: Yes (Death)
  Sender: FDA-Public Use
  Company Number: PHHY2011NL100126

PATIENT
  Sex: Male
  Weight: 67 kg

DRUGS (5)
  1. ZOMETA [Suspect]
     Indication: LUNG CANCER METASTATIC
     Dosage: UNK UKN, UNK
     Route: 042
  2. ZOMETA [Suspect]
     Dosage: UNK UKN, UNK
     Route: 042
     Dates: start: 20111021
  3. MORPHINE [Concomitant]
     Dosage: 10 MG, BID
     Route: 048
  4. MORPHINE [Concomitant]
     Dosage: 25 UG, PATCH
  5. DICLOFENAC [Concomitant]
     Dosage: 50 MG, TID
     Route: 048

REACTIONS (1)
  - DEATH [None]
